FAERS Safety Report 7262204-2 (Version None)
Quarter: 2011Q1

REPORT INFORMATION
  Report Type: 
  Country: None (occurrence: None)
  Receive Date: 20110130
  Receipt Date: 20101115
  Transmission Date: 20110831
  Serious: No
  Sender: FDA-Public Use
  Company Number: US-ABBOTT-10P-163-0685480-00

PATIENT
  Sex: Female
  Weight: 53.572 kg

DRUGS (3)
  1. HUMIRA [Suspect]
     Indication: CROHN'S DISEASE
     Dates: start: 20101018
  2. HUMIRA [Suspect]
     Indication: COLITIS ULCERATIVE
  3. CORTIFLAM ENEMAS [Concomitant]
     Indication: COLITIS ULCERATIVE

REACTIONS (4)
  - COUGH [None]
  - NASOPHARYNGITIS [None]
  - SINUS CONGESTION [None]
  - ILL-DEFINED DISORDER [None]
